FAERS Safety Report 10207346 (Version 3)
Quarter: 2014Q2

REPORT INFORMATION
  Report Type: Spontaneous
  Country: US (occurrence: US)
  Receive Date: 20140530
  Receipt Date: 20140612
  Transmission Date: 20141212
  Serious: Yes (Hospitalization, Other)
  Sender: FDA-Public Use
  Company Number: US-BAXTER-2014BAX025317

PATIENT
  Age: 70 Year
  Sex: Male

DRUGS (4)
  1. DIANEAL LOW CALCIUM [Suspect]
     Indication: PERITONEAL DIALYSIS
     Route: 033
     Dates: start: 201402
  2. DIANEAL LOW CALCIUM [Suspect]
     Indication: PERITONEAL DIALYSIS
     Route: 033
     Dates: start: 201402
  3. CARVEDILOL [Suspect]
     Indication: HYPERTENSION
     Route: 048
     Dates: end: 201405
  4. CARVEDILOL [Concomitant]
     Indication: HYPERTENSION
     Route: 048
     Dates: end: 201405

REACTIONS (2)
  - Cardiac disorder [Recovering/Resolving]
  - Heart rate decreased [Recovering/Resolving]
